FAERS Safety Report 5306415-1 (Version None)
Quarter: 2007Q2

REPORT INFORMATION
  Report Type: 
  Country: None (occurrence: None)
  Receive Date: 20070424
  Receipt Date: 20070410
  Transmission Date: 20071010
  Serious: Yes (Hospitalization)
  Sender: FDA-Public Use
  Company Number: NL-GENENTECH-240299

PATIENT
  Sex: Male

DRUGS (6)
  1. BEVACIZUMAB [Suspect]
     Indication: COLORECTAL CANCER
     Dosage: 600 MG, Q3W
     Route: 042
     Dates: start: 20061211
  2. CAPECITABINE [Suspect]
     Indication: COLORECTAL CANCER
     Dosage: 3600 MG, QD
     Route: 048
     Dates: start: 20061211
  3. CAPECITABINE [Suspect]
     Dosage: 2800 MG, UNK
     Route: 048
  4. CAPECITABINE [Suspect]
     Dosage: 1800 MG, UNK
     Route: 048
  5. OXALIPLATIN [Suspect]
     Indication: COLORECTAL CANCER
     Dosage: 250 MG, Q3W
     Route: 042
     Dates: start: 20061211
  6. METOCLOPRAMIDE [Concomitant]
     Indication: DRUG USE FOR UNKNOWN INDICATION
     Route: 065

REACTIONS (1)
  - PYREXIA [None]
